FAERS Safety Report 4316511-3 (Version None)
Quarter: 2004Q1

REPORT INFORMATION
  Report Type: 
  Country: None (occurrence: None)
  Receive Date: 20040312
  Receipt Date: 20010314
  Transmission Date: 20041129
  Serious: Yes (Hospitalization)
  Sender: FDA-Public Use
  Company Number: WAES 01031627

PATIENT
  Age: 69 Year
  Sex: Female

DRUGS (8)
  1. LORTAB [Concomitant]
     Dates: start: 20000101
  2. FOSAMAX [Concomitant]
  3. PREMPRO [Concomitant]
  4. PREVACID [Concomitant]
  5. ZESTRIL [Concomitant]
     Dates: start: 19980101
  6. LITHIUM CARBONATE [Suspect]
     Indication: BIPOLAR DISORDER
     Route: 048
     Dates: end: 20001201
  7. LITHIUM CARBONATE [Suspect]
     Route: 048
     Dates: end: 20001201
  8. VIOXX [Suspect]
     Indication: SCIATICA
     Route: 048
     Dates: start: 20000101

REACTIONS (23)
  - AMNESIA [None]
  - BLINDNESS [None]
  - CONFUSIONAL STATE [None]
  - DISORIENTATION [None]
  - DRUG INTERACTION [None]
  - GAIT DISTURBANCE [None]
  - GOITRE [None]
  - HAEMATOCRIT DECREASED [None]
  - HAEMOGLOBIN DECREASED [None]
  - HALLUCINATION [None]
  - HEADACHE [None]
  - INCOHERENT [None]
  - KYPHOSIS [None]
  - MEDICATION ERROR [None]
  - MENTAL STATUS CHANGES [None]
  - NEUROPATHY [None]
  - PERIPHERAL SENSORY NEUROPATHY [None]
  - POLLAKIURIA [None]
  - SUPRAVENTRICULAR EXTRASYSTOLES [None]
  - THERAPEUTIC AGENT TOXICITY [None]
  - TREMOR [None]
  - VISUAL DISTURBANCE [None]
  - WEIGHT DECREASED [None]
